FAERS Safety Report 8046039-9 (Version None)
Quarter: 2012Q1

REPORT INFORMATION
  Report Type: 
  Country: None (occurrence: None)
  Receive Date: 20120113
  Receipt Date: 20120109
  Transmission Date: 20120608
  Serious: Yes (Congenital Anomaly, Other)
  Sender: FDA-Public Use
  Company Number: US-PFIZER INC-2011308682

PATIENT
  Sex: Male
  Weight: 3.18 kg

DRUGS (1)
  1. SERTRALINE HYDROCHLORIDE [Suspect]
     Dosage: 100 MG, UNK
     Route: 064
     Dates: start: 20070531

REACTIONS (8)
  - MATERNAL EXPOSURE TIMING UNSPECIFIED [None]
  - PULMONARY ARTERY DILATATION [None]
  - PATENT DUCTUS ARTERIOSUS [None]
  - PULMONARY VALVE INCOMPETENCE [None]
  - ATRIAL SEPTAL DEFECT [None]
  - PULMONARY VALVE STENOSIS [None]
  - DILATATION VENTRICULAR [None]
  - RIGHT VENTRICULAR HYPERTROPHY [None]
